FAERS Safety Report 8521889-0 (Version None)
Quarter: 2012Q3

REPORT INFORMATION
  Report Type: 
  Country: None (occurrence: None)
  Receive Date: 20120719
  Receipt Date: 20120711
  Transmission Date: 20120928
  Serious: Yes (Death, Hospitalization)
  Sender: FDA-Public Use
  Company Number: BR-JNJFOC-20120407203

PATIENT
  Sex: Female
  Weight: 42 kg

DRUGS (4)
  1. ANTIHYPERTENSIVES [Concomitant]
     Indication: HYPERTENSION
  2. CEPHALEXIN [Concomitant]
     Indication: INFECTION PROPHYLAXIS
     Dates: start: 20120326, end: 20120330
  3. XARELTO [Suspect]
     Indication: HIP ARTHROPLASTY
     Route: 048
     Dates: start: 20120326, end: 20120409
  4. XARELTO [Suspect]
     Indication: THROMBOSIS PROPHYLAXIS
     Route: 048
     Dates: start: 20120326, end: 20120409

REACTIONS (2)
  - PNEUMONIA [None]
  - PULMONARY EMBOLISM [None]
